FAERS Safety Report 4660150-1 (Version None)
Quarter: 2005Q2

REPORT INFORMATION
  Report Type: 
  Country: None (occurrence: None)
  Receive Date: 20050512
  Receipt Date: 20040817
  Transmission Date: 20051028
  Serious: Yes (Hospitalization)
  Sender: FDA-Public Use
  Company Number: FR-NOVOPROD-238702

PATIENT
  Age: 77 Year
  Sex: Female
  Weight: 60 kg

DRUGS (6)
  1. NOVONORM [Suspect]
     Indication: DIABETES MELLITUS NON-INSULIN-DEPENDENT
     Dosage: 1 MG, QD
     Route: 048
     Dates: start: 20040708, end: 20040803
  2. LASILIX [Concomitant]
     Dosage: 20 MG, QD
     Route: 048
  3. VASTAREL ^BIOPHARMA^ [Concomitant]
     Dosage: UNK, QD
     Route: 048
  4. EUPRESSYL [Concomitant]
     Dosage: 60 MG, QD
     Route: 048
  5. COVERSYL [Concomitant]
     Dosage: 2 MG, QD
     Route: 048
  6. PLAVIX [Concomitant]
     Dosage: UNK, QD
     Route: 048

REACTIONS (5)
  - APHASIA [None]
  - HYPOGLYCAEMIA [None]
  - HYPOGLYCAEMIC COMA [None]
  - LOSS OF CONSCIOUSNESS [None]
  - SYNCOPE [None]
